FAERS Safety Report 24810067 (Version 1)
Quarter: 2025Q1

REPORT INFORMATION
  Report Type: Spontaneous
  Country: US (occurrence: None)
  Receive Date: 20250104
  Receipt Date: 20250104
  Transmission Date: 20250409
  Serious: No
  Sender: FDA-CTU
  Company Number: None

PATIENT
  Sex: Male

DRUGS (1)
  1. SKYRIZI [Suspect]
     Active Substance: RISANKIZUMAB-RZAA
     Dosage: FREQUENCY : EVERY 12 HOURS;?
     Route: 058
     Dates: start: 20250103, end: 20250103

REACTIONS (5)
  - Dizziness [None]
  - Hyperhidrosis [None]
  - Loss of consciousness [None]
  - Wrong technique in product usage process [None]
  - Injection site haemorrhage [None]
